FAERS Safety Report 18293839 (Version 5)
Quarter: 2022Q4

REPORT INFORMATION
  Report Type: Spontaneous
  Country: US (occurrence: US)
  Receive Date: 20200921
  Receipt Date: 20221230
  Transmission Date: 20230113
  Serious: No
  Sender: FDA-Public Use
  Company Number: US-ACORDA-ACO_165934_2020

PATIENT
  Age: 66 Year
  Sex: Male

DRUGS (7)
  1. INBRIJA [Suspect]
     Active Substance: LEVODOPA
     Indication: Parkinson^s disease
     Dosage: 84 MILLIGRAM, PRN, NOT TO EXCEED 5 DOSES A DAY
     Dates: start: 20200802
  2. INBRIJA [Suspect]
     Active Substance: LEVODOPA
     Indication: On and off phenomenon
  3. CARBIDOPA AND LEVODOPA [Concomitant]
     Active Substance: CARBIDOPA\LEVODOPA
     Indication: Product used for unknown indication
     Dosage: 25/100 MG, 1.5 PILLS 5-6X/DAY
     Route: 048
  4. CARBIDOPA AND LEVODOPA [Concomitant]
     Active Substance: CARBIDOPA\LEVODOPA
     Dosage: 25MG/ 100 MG: THREE TABLETS THREE TIMES PER DAY
     Route: 065
  5. SINEMET [Concomitant]
     Active Substance: CARBIDOPA\LEVODOPA
     Indication: Product used for unknown indication
     Dosage: 25/100 1.5 PILLS PER DOSE 4 TO 6 TIMES A DAY
     Route: 065
  6. ENTACAPONE [Concomitant]
     Active Substance: ENTACAPONE
     Indication: Product used for unknown indication
     Dosage: 200 MILLIGRAM, IN CONJUNCTION WITH GENERIC SINEMET (4 TO 6 TIMES A DAY)
     Route: 065
  7. ENTACAPONE [Concomitant]
     Active Substance: ENTACAPONE
     Dosage: 1 PILL 5-6 X/DAYS
     Route: 065

REACTIONS (17)
  - Device difficult to use [Unknown]
  - Therapeutic product effect delayed [Unknown]
  - Vasomotor rhinitis [Not Recovered/Not Resolved]
  - Dyspepsia [Unknown]
  - Constipation [Unknown]
  - Device use issue [Unknown]
  - Musculoskeletal stiffness [Unknown]
  - Product packaging difficult to open [Unknown]
  - Condition aggravated [Unknown]
  - Disease progression [Unknown]
  - Mobility decreased [Unknown]
  - Nervous system disorder [Unknown]
  - Withdrawal syndrome [Unknown]
  - Therapeutic product effect variable [Unknown]
  - Confusional state [Unknown]
  - Cough [Unknown]
  - Drug ineffective [Unknown]

NARRATIVE: CASE EVENT DATE: 20201101
